FAERS Safety Report 7489366-6 (Version None)
Quarter: 2011Q2

REPORT INFORMATION
  Report Type: 
  Country: None (occurrence: None)
  Receive Date: 20110518
  Receipt Date: 20110510
  Transmission Date: 20111010
  Serious: Yes (Life-Threatening, Hospitalization)
  Sender: FDA-Public Use
  Company Number: NL-TEVA-281127ISR

PATIENT
  Sex: Female
  Weight: 80 kg

DRUGS (4)
  1. CELECOXIB [Suspect]
     Dosage: 100 MILLIGRAM;
     Dates: start: 20110421
  2. HYDROCHLOROTHIAZIDE [Suspect]
     Indication: HYPERTENSION
     Dosage: 12.5 MILLIGRAM;
     Dates: start: 20110301
  3. LISINOPRIL [Suspect]
     Indication: HYPERTENSION
     Dosage: 10 MILLIGRAM;
     Dates: start: 20110417, end: 20110425
  4. AZITHROMYCIN [Suspect]
     Indication: INFECTION
     Dosage: 500 MILLIGRAM;
     Dates: start: 20110421, end: 20110421

REACTIONS (1)
  - ANGIOEDEMA [None]
